FAERS Safety Report 24559581 (Version 1)
Quarter: 2024Q4

REPORT INFORMATION
  Report Type: Spontaneous
  Country: US (occurrence: US)
  Receive Date: 20241029
  Receipt Date: 20241029
  Transmission Date: 20250115
  Serious: No
  Sender: TAKEDA
  Company Number: US-TAKEDA-2024TUS108740

PATIENT
  Sex: Male

DRUGS (1)
  1. ADDERALL XR [Suspect]
     Active Substance: AMPHETAMINE ASPARTATE\AMPHETAMINE SULFATE\DEXTROAMPHETAMINE SACCHARATE\DEXTROAMPHETAMINE SULFATE
     Indication: Neurotransmitter level altered
     Dosage: 10 MILLIGRAM
     Route: 065

REACTIONS (4)
  - No adverse event [Unknown]
  - Product use issue [Unknown]
  - Product use in unapproved indication [Unknown]
  - Product availability issue [Unknown]
